FAERS Safety Report 7499604-1 (Version None)
Quarter: 2011Q2

REPORT INFORMATION
  Report Type: 
  Country: None (occurrence: None)
  Receive Date: 20110517
  Receipt Date: 20100915
  Transmission Date: 20111010
  Serious: No
  Sender: FDA-Public Use
  Company Number: 2010026460

PATIENT
  Age: 24 Year
  Sex: Female

DRUGS (1)
  1. HUMATE-P [Suspect]
     Indication: VON WILLEBRAND'S DISEASE
     Dosage: (PARENTERAL)
     Route: 051
     Dates: start: 20100915

REACTIONS (3)
  - NAUSEA [None]
  - RENAL PAIN [None]
  - PAIN IN EXTREMITY [None]
